FAERS Safety Report 4396206-0 (Version None)
Quarter: 2004Q3

REPORT INFORMATION
  Report Type: 
  Country: None (occurrence: None)
  Receive Date: 20040709
  Receipt Date: 20040629
  Transmission Date: 20050211
  Serious: Yes (Death, Hospitalization)
  Sender: FDA-Public Use
  Company Number: 04P-163-0265030-00

PATIENT
  Age: 75 Year
  Sex: Male

DRUGS (14)
  1. DEPAKOTE ER [Suspect]
     Indication: BIPOLAR DISORDER
     Dosage: SEE IMAGE
     Route: 048
     Dates: start: 20010101, end: 20020408
  2. DEPAKOTE ER [Suspect]
     Indication: BIPOLAR DISORDER
     Dosage: SEE IMAGE
     Route: 048
     Dates: start: 20020408, end: 20020410
  3. DEPAKOTE ER [Suspect]
     Indication: BIPOLAR DISORDER
     Dosage: SEE IMAGE
     Route: 048
     Dates: start: 20020410, end: 20020413
  4. DEPAKOTE ER [Suspect]
     Indication: BIPOLAR DISORDER
     Dosage: SEE IMAGE
     Route: 048
     Dates: start: 20020413, end: 20020701
  5. PAROXETINE HYDROCHLORIDE [Suspect]
     Indication: BIPOLAR DISORDER
     Dosage: 10 MG, 1 IN 1 D, PER ORAL
     Route: 048
     Dates: end: 20020701
  6. BUPROPION HYDROCHLORIDE [Suspect]
     Indication: BIPOLAR DISORDER
     Dosage: 1 IN 1 D, PER ORAL
     Route: 048
     Dates: end: 20020413
  7. BUPROPION HYDROCHLORIDE [Suspect]
     Indication: BIPOLAR DISORDER
     Dosage: 1 IN 1 D, PER ORAL
     Route: 048
     Dates: start: 20020413, end: 20020701
  8. SERTRALINE HYDROCHLORIDE [Suspect]
     Indication: BIPOLAR DISORDER
     Dosage: 1 IN 1 D, PER ORAL
     Route: 048
     Dates: end: 20020408
  9. MIRTAZAPINE [Suspect]
     Indication: BIPOLAR DISORDER
     Dosage: SEE IMAGE
     Route: 048
     Dates: end: 20020701
  10. MIRTAZAPINE [Suspect]
     Indication: BIPOLAR DISORDER
     Dosage: SEE IMAGE
     Route: 048
     Dates: start: 20020701
  11. TRILAZEM [Suspect]
     Indication: SLEEP DISORDER
     Dosage: 1 IN 1 D, PER ORAL
     Route: 048
     Dates: start: 19980101, end: 20020412
  12. ACETAMINOPHEN W/ CODEINE [Concomitant]
  13. ZOCOR [Concomitant]
  14. ASPIRIN [Concomitant]

REACTIONS (20)
  - ABASIA [None]
  - ANGLE CLOSURE GLAUCOMA [None]
  - ASTHENIA [None]
  - BRAIN DAMAGE [None]
  - COMA [None]
  - COMMUNICATION DISORDER [None]
  - DECREASED APPETITE [None]
  - DIABETES MELLITUS [None]
  - DISTURBANCE IN ATTENTION [None]
  - DYSPHAGIA [None]
  - DYSPNOEA [None]
  - FEELING ABNORMAL [None]
  - INFECTED CYST [None]
  - LETHARGY [None]
  - MEDICATION ERROR [None]
  - OVERDOSE [None]
  - PARKINSON'S DISEASE [None]
  - PNEUMONIA ASPIRATION [None]
  - SLEEP DISORDER [None]
  - SOMNOLENCE [None]
